FAERS Safety Report 14188102 (Version 1)
Quarter: 2017Q4

REPORT INFORMATION
  Report Type: Spontaneous
  Country: DE (occurrence: DE)
  Receive Date: 20171114
  Receipt Date: 20171114
  Transmission Date: 20180321
  Serious: Yes (Hospitalization)
  Sender: FDA-Public Use
  Company Number: DE-SA-2017SA146749

PATIENT
  Age: 67 Year
  Sex: Female
  Weight: 62.5 kg

DRUGS (6)
  1. SELEN [Concomitant]
     Active Substance: SELENIUM
     Route: 048
  2. OMEPRAZOLE. [Concomitant]
     Active Substance: OMEPRAZOLE
     Route: 048
  3. CLEXANE [Suspect]
     Active Substance: ENOXAPARIN SODIUM
     Indication: PROPHYLAXIS
     Route: 058
     Dates: start: 20170718, end: 20170807
  4. VITAMIN D [Concomitant]
     Active Substance: CHOLECALCIFEROL
     Route: 065
  5. TAMOXIFEN [Concomitant]
     Active Substance: TAMOXIFEN
     Route: 048
  6. ALENDRONIC ACID [Concomitant]
     Active Substance: ALENDRONIC ACID
     Dosage: ON TUES DAY
     Route: 048

REACTIONS (5)
  - Hepatitis [Unknown]
  - Toxicity to various agents [Unknown]
  - Transaminases increased [Recovering/Resolving]
  - Hypochromic anaemia [Unknown]
  - Nausea [Unknown]

NARRATIVE: CASE EVENT DATE: 2017
